FAERS Safety Report 6318347-0 (Version None)
Quarter: 2009Q3

REPORT INFORMATION
  Report Type: 
  Country: None (occurrence: None)
  Receive Date: 20090821
  Receipt Date: 20090805
  Transmission Date: 20100115
  Serious: Yes (Other)
  Sender: FDA-Public Use
  Company Number: JP-MERCK-0908USA01526

PATIENT
  Age: 76 Year
  Sex: Female

DRUGS (1)
  1. FOSAMAX [Suspect]
     Indication: OSTEOPOROSIS
     Route: 048

REACTIONS (2)
  - FEMUR FRACTURE [None]
  - STRESS FRACTURE [None]
